FAERS Safety Report 15984901 (Version 1)
Quarter: 2019Q1

REPORT INFORMATION
  Report Type: Spontaneous
  Country: US (occurrence: US)
  Receive Date: 20190220
  Receipt Date: 20190220
  Transmission Date: 20190418
  Serious: No
  Sender: FDA-Public Use
  Company Number: US-GLAXOSMITHKLINE-US2019GSK014400

PATIENT
  Sex: Female

DRUGS (2)
  1. BENZOYL PEROXIDE + CLINDAMYCIN PHOSPHATE GEL [Suspect]
     Active Substance: BENZOYL PEROXIDE\CLINDAMYCIN PHOSPHATE
     Indication: ACNE
     Dosage: UNK
  2. ADAPALENE GEL [Suspect]
     Active Substance: ADAPALENE
     Indication: ACNE
     Dosage: UNK

REACTIONS (1)
  - Dry skin [Unknown]
